FAERS Safety Report 8501444-9 (Version None)
Quarter: 2012Q3

REPORT INFORMATION
  Report Type: 
  Country: None (occurrence: None)
  Receive Date: 20120710
  Receipt Date: 20120702
  Transmission Date: 20120928
  Serious: Yes (Other)
  Sender: FDA-Public Use
  Company Number: US-ABBOTT-12P-163-0909611-00

PATIENT
  Sex: Male
  Weight: 59.928 kg

DRUGS (11)
  1. MARINOL [Suspect]
     Indication: HIV INFECTION
     Dosage: TWICE DAILY - BEFORE LUNCH + DINNER
     Dates: start: 20110801
  2. LYRICA [Suspect]
     Indication: NEURALGIA
  3. PREZISTA [Suspect]
     Indication: HIV INFECTION
  4. TRUVADA [Suspect]
     Indication: HIV INFECTION
  5. LISINOPRIL [Suspect]
     Indication: HYPERTENSION
  6. NORTRIPTYLINE HCL [Suspect]
     Indication: PRODUCT USED FOR UNKNOWN INDICATION
  7. MARINOL [Suspect]
     Indication: PAIN
  8. NORVIR [Suspect]
     Indication: HIV INFECTION
  9. MARINOL [Suspect]
     Indication: APPETITE DISORDER
  10. AMBIEN [Suspect]
     Indication: INSOMNIA
  11. TRUVADA [Suspect]
     Indication: DIABETES MELLITUS

REACTIONS (5)
  - SUICIDAL IDEATION [None]
  - TREMOR [None]
  - OFF LABEL USE [None]
  - SLEEP DISORDER [None]
  - INSOMNIA [None]
